FAERS Safety Report 11181615 (Version 5)
Quarter: 2015Q3

REPORT INFORMATION
  Report Type: Spontaneous
  Country: HR (occurrence: HR)
  Receive Date: 20150611
  Receipt Date: 20150715
  Transmission Date: 20151125
  Serious: Yes (Hospitalization, Other)
  Sender: FDA-Public Use
  Company Number: HR-ABBVIE-15K-216-1403366-00

PATIENT
  Sex: Female

DRUGS (2)
  1. HUMIRA [Suspect]
     Active Substance: ADALIMUMAB
     Route: 058
     Dates: start: 201506
  2. HUMIRA [Suspect]
     Active Substance: ADALIMUMAB
     Indication: PSORIASIS
     Route: 058
     Dates: start: 20150211, end: 201505

REACTIONS (6)
  - Haemorrhagic anaemia [Unknown]
  - Cervix haemorrhage uterine [Unknown]
  - Uterine cervical squamous metaplasia [Unknown]
  - Psoriasis [Not Recovered/Not Resolved]
  - Cervicitis [Unknown]
  - Cervical polyp [Unknown]
